FAERS Safety Report 18888361 (Version 1)
Quarter: 2021Q1

REPORT INFORMATION
  Report Type: Report from Study
  Country: BR (occurrence: BR)
  Receive Date: 20210212
  Receipt Date: 20210212
  Transmission Date: 20210420
  Serious: Yes (Death)
  Sender: FDA-Public Use
  Company Number: NVSC2020BR341852

PATIENT
  Age: 66 Year
  Sex: Male

DRUGS (3)
  1. VOTRIENT [Suspect]
     Active Substance: PAZOPANIB HYDROCHLORIDE
     Indication: METASTATIC RENAL CELL CARCINOMA
     Dosage: 400 MG, QD
     Route: 065
     Dates: start: 20201125
  2. VOTRIENT [Suspect]
     Active Substance: PAZOPANIB HYDROCHLORIDE
     Dosage: UNK (ALTERNATE DAYS WITH 1 TABLET)
     Route: 065
     Dates: start: 20201215
  3. VOTRIENT [Suspect]
     Active Substance: PAZOPANIB HYDROCHLORIDE
     Dosage: UNK (2 TABLETS /1 TABLET ALTERNATE DAYS)
     Route: 065
     Dates: start: 202011, end: 20210119

REACTIONS (9)
  - Incorrect dose administered [Not Recovered/Not Resolved]
  - Therapeutic response unexpected [Unknown]
  - Somnolence [Unknown]
  - Nausea [Unknown]
  - Neoplasm [Fatal]
  - Vomiting [Unknown]
  - Diarrhoea [Unknown]
  - Sepsis [Fatal]
  - Decreased appetite [Unknown]

NARRATIVE: CASE EVENT DATE: 20201215
